FAERS Safety Report 4366081-9 (Version None)
Quarter: 2004Q2

REPORT INFORMATION
  Report Type: 
  Country: None (occurrence: None)
  Receive Date: 20040526
  Receipt Date: 20040526
  Transmission Date: 20050107
  Serious: Yes (Hospitalization)
  Sender: FDA-Public Use
  Company Number: None

PATIENT
  Sex: Female

DRUGS (3)
  1. NAMENDA [Suspect]
     Indication: DEMENTIA ALZHEIMER'S TYPE
     Dosage: 5 MG PO BID
     Route: 048
     Dates: start: 20040420, end: 20040510
  2. LEXAPRO [Concomitant]
  3. VIT B-12 [Concomitant]

REACTIONS (6)
  - ABNORMAL BEHAVIOUR [None]
  - BELLIGERENCE [None]
  - DELUSION [None]
  - HALLUCINATION [None]
  - PARANOIA [None]
  - RESTLESSNESS [None]
